FAERS Safety Report 7694107-3 (Version None)
Quarter: 2011Q3

REPORT INFORMATION
  Report Type: 
  Country: None (occurrence: None)
  Receive Date: 20110819
  Receipt Date: 20110805
  Transmission Date: 20111222
  Serious: Yes (Hospitalization)
  Sender: FDA-Public Use
  Company Number: GB-CELGENEUS-167-21880-10090307

PATIENT
  Sex: Female

DRUGS (9)
  1. LENALIDOMIDE [Suspect]
     Dosage: 10 MILLIGRAM
     Route: 048
     Dates: start: 20100816, end: 20100901
  2. SIMVASTATIN [Concomitant]
     Dosage: 40 MILLIGRAM
     Route: 065
     Dates: start: 20040101
  3. RANITIDINE [Concomitant]
     Indication: PROPHYLAXIS
     Route: 065
     Dates: start: 20090601
  4. AMLODIPINE [Concomitant]
     Indication: HYPERTENSION
     Dosage: 5 MILLIGRAM
     Route: 065
     Dates: start: 20030101
  5. DEXAMETHASONE [Suspect]
     Indication: MULTIPLE MYELOMA
     Dosage: 20 MILLIGRAM
     Route: 065
     Dates: start: 20090309
  6. LENALIDOMIDE [Suspect]
     Indication: MULTIPLE MYELOMA
     Dosage: 15 MILLIGRAM
     Route: 048
     Dates: start: 20090309
  7. DEXAMETHASONE [Suspect]
     Dosage: 20 MILLIGRAM
     Route: 065
     Dates: start: 20100816, end: 20100901
  8. ASPIRIN [Concomitant]
     Dosage: 75 MILLIGRAM
     Route: 065
     Dates: start: 20090309
  9. TRAMADOL HCL [Concomitant]
     Route: 065
     Dates: start: 20090614

REACTIONS (2)
  - PNEUMONIA [None]
  - ARTHRITIS BACTERIAL [None]
